FAERS Safety Report 8386815-6 (Version None)
Quarter: 2012Q2

REPORT INFORMATION
  Report Type: 
  Country: None (occurrence: None)
  Receive Date: 20120525
  Receipt Date: 20120514
  Transmission Date: 20120825
  Serious: Yes (Death, Life-Threatening, Hospitalization)
  Sender: FDA-Public Use
  Company Number: US-BAXTER-2012BAX005643

PATIENT
  Sex: Male
  Weight: 90.4 kg

DRUGS (17)
  1. NAMENDA [Concomitant]
     Route: 048
     Dates: start: 20090501, end: 20120201
  2. SEROQUEL [Concomitant]
     Indication: ANXIETY
     Route: 048
     Dates: start: 20110629, end: 20110724
  3. NUEDEXTA [Concomitant]
     Indication: ANXIETY
     Route: 048
     Dates: start: 20120131, end: 20120207
  4. COMPLEX CURCUMIN [Concomitant]
     Indication: SUPPLEMENTATION THERAPY
     Route: 048
     Dates: start: 20100414
  5. GAMMAGARD LIQUID [Suspect]
     Route: 042
     Dates: start: 20111006, end: 20120111
  6. VITAMIN E [Concomitant]
     Indication: SUPPLEMENTATION THERAPY
     Route: 048
     Dates: start: 20090615
  7. VITAMIN B COMPLEX CAP [Concomitant]
     Indication: SUPPLEMENTATION THERAPY
     Route: 048
     Dates: start: 20090615
  8. MULTI-VITAMIN [Concomitant]
     Indication: SUPPLEMENTATION THERAPY
     Route: 048
     Dates: start: 20090615
  9. SEROQUEL [Concomitant]
     Route: 048
     Dates: start: 20110725, end: 20111105
  10. SEROQUEL [Concomitant]
     Route: 048
     Dates: start: 20111106, end: 20111119
  11. NUEDEXTA [Concomitant]
     Dosage: 20/10 MG
     Route: 048
     Dates: start: 20120207
  12. GAMMAGARD LIQUID [Suspect]
     Route: 042
     Dates: start: 20101104, end: 20110922
  13. NAMENDA [Concomitant]
     Route: 048
     Dates: start: 20120223, end: 20120301
  14. GALANTAMINE ER [Concomitant]
     Route: 048
     Dates: start: 20100614
  15. SEROQUEL [Concomitant]
     Route: 048
     Dates: start: 20111126
  16. NAMENDA [Concomitant]
     Route: 048
     Dates: start: 20120302
  17. VITAMIN D [Concomitant]
     Indication: SUPPLEMENTATION THERAPY
     Route: 048
     Dates: start: 20100414

REACTIONS (1)
  - PULMONARY EMBOLISM [None]
